FAERS Safety Report 21062253 (Version 1)
Quarter: 2022Q3

REPORT INFORMATION
  Report Type: Spontaneous
  Country: AU (occurrence: AU)
  Receive Date: 20220711
  Receipt Date: 20220711
  Transmission Date: 20221026
  Serious: Yes (Life-Threatening, Hospitalization, Other)
  Sender: FDA-Public Use
  Company Number: AU-AMGEN-AUSSP2021152008

PATIENT
  Age: 83 Year
  Sex: Male

DRUGS (3)
  1. PROLIA [Suspect]
     Active Substance: DENOSUMAB
     Indication: Product used for unknown indication
     Dosage: 60 MILLIGRAM, Q3WK
     Route: 058
  2. IRON POLYMALTOSE [Concomitant]
     Active Substance: IRON POLYMALTOSE
     Route: 042
  3. FERRIC CARBOXYMALTOSE [Concomitant]
     Active Substance: FERRIC CARBOXYMALTOSE
     Dosage: 1 GRAM

REACTIONS (3)
  - Hypocalcaemia [Unknown]
  - Blood parathyroid hormone increased [Unknown]
  - Hypophosphataemia [Unknown]
